FAERS Safety Report 23339573 (Version 1)
Quarter: 2023Q4

REPORT INFORMATION
  Report Type: Spontaneous
  Country: None (occurrence: US)
  Receive Date: 20231226
  Receipt Date: 20231226
  Transmission Date: 20240110
  Serious: No
  Sender: FDA-Public Use
  Company Number: US-STI Pharma LLC-2149719

PATIENT
  Age: 67 Year
  Sex: Female

DRUGS (1)
  1. ETHAMBUTOL HYDROCHLORIDE [Suspect]
     Active Substance: ETHAMBUTOL HYDROCHLORIDE

REACTIONS (3)
  - Pulmonary tuberculosis [Unknown]
  - Cough [Unknown]
  - Atypical mycobacterium test positive [Unknown]
